FAERS Safety Report 9625101 (Version 2)
Quarter: 2014Q1

REPORT INFORMATION
  Report Type: Report from Study
  Country: GB (occurrence: GB)
  Receive Date: 20131016
  Receipt Date: 20140120
  Transmission Date: 20141002
  Serious: Yes (Hospitalization, Other)
  Sender: FDA-Public Use
  Company Number: GB-MERCK-1310GBR005191

PATIENT
  Age: 68 Year
  Sex: Male
  Weight: 79.5 kg

DRUGS (15)
  1. VORINOSTAT [Suspect]
     Dosage: 300 MG, BID; CYCLE 1
     Route: 048
     Dates: start: 20130925, end: 20131001
  2. VORINOSTAT [Suspect]
     Dosage: 300 MG, BID, CYCLE 4
     Route: 048
  3. AZACITIDINE [Suspect]
     Dosage: 75 MG/M2, QD; CYCLE 1
     Route: 058
     Dates: start: 20130923, end: 20131001
  4. AZACITIDINE [Suspect]
     Dosage: 145 MG, QD
     Route: 058
  5. FLUCONAZOLE [Concomitant]
     Indication: FUNGAL INFECTION
     Dosage: 50 MG, QD
     Route: 048
     Dates: start: 20130923
  6. ACYCLOVIR [Concomitant]
     Indication: ANTIVIRAL TREATMENT
     Dosage: 200 MG, TID
     Dates: start: 20130923
  7. LISINOPRIL [Concomitant]
     Indication: BLOOD PRESSURE ABNORMAL
     Dosage: 20 MG, QD
     Route: 048
     Dates: start: 201009
  8. CIPROFLOXACIN [Concomitant]
     Indication: ANTIBIOTIC THERAPY
     Dosage: 500 MG, BID; 28 DAYS
     Route: 048
     Dates: start: 20131003
  9. CIPROFLOXACIN [Concomitant]
     Dosage: 500 MG, BID
     Route: 048
     Dates: start: 20131007
  10. TOPIRAMATE [Concomitant]
     Indication: MIGRAINE
     Dosage: 25 MG, QD; 28 DAYS
     Route: 048
     Dates: start: 20131004
  11. TOPIRAMATE [Concomitant]
     Dosage: 20 MG, QD
     Route: 048
     Dates: start: 201206
  12. OMEPRAZOLE [Concomitant]
     Indication: ANTACID THERAPY
     Dosage: 20 MG, QD
     Route: 048
     Dates: start: 20131010
  13. TRANEXAMIC ACID [Concomitant]
     Indication: HAEMORRHAGE
     Dosage: 1 G, TID
     Route: 048
     Dates: start: 20131010
  14. METOCLOPRAMIDE [Concomitant]
     Indication: MALAISE
     Dosage: 10 MG, PRN
     Route: 048
     Dates: start: 20130923
  15. ONDANSETRON [Concomitant]
     Indication: MALAISE
     Dosage: 8 MG, QD
     Route: 048
     Dates: start: 20130923

REACTIONS (7)
  - Febrile neutropenia [Recovered/Resolved]
  - Pyrexia [Recovered/Resolved]
  - Sepsis [Recovered/Resolved]
  - Large intestinal haemorrhage [Not Recovered/Not Resolved]
  - Melaena [Recovered/Resolved]
  - Haemorrhage [Recovered/Resolved]
  - Upper gastrointestinal haemorrhage [Unknown]
